FAERS Safety Report 7812540-3 (Version None)
Quarter: 2011Q4

REPORT INFORMATION
  Report Type: 
  Country: None (occurrence: None)
  Receive Date: 20111013
  Receipt Date: 20111004
  Transmission Date: 20120403
  Serious: Yes (Other)
  Sender: FDA-Public Use
  Company Number: FR-PFIZER INC-2011221430

PATIENT
  Age: 22 Month
  Sex: Male
  Weight: 12 kg

DRUGS (10)
  1. NONACOG ALFA [Suspect]
     Dosage: 1000 IU, 1X/DAY
     Route: 042
     Dates: start: 20110819, end: 20110819
  2. NONACOG ALFA [Suspect]
     Dosage: 1000 IU, 1X/DAY
     Route: 042
     Dates: start: 20110812, end: 20110812
  3. NONACOG ALFA [Suspect]
     Dosage: 1000 IU, 1X/DAY
     Route: 042
     Dates: start: 20110822, end: 20110822
  4. NONACOG ALFA [Suspect]
  5. NONACOG ALFA [Suspect]
     Indication: FACTOR IX DEFICIENCY
     Dosage: 1000 IU, 1X/DAY
     Route: 042
     Dates: start: 20110808, end: 20110808
  6. NONACOG ALFA [Suspect]
     Dosage: 1000 IU, 1X/DAY
     Route: 042
     Dates: start: 20110810, end: 20110810
  7. NONACOG ALFA [Suspect]
  8. NONACOG ALFA [Suspect]
     Indication: HAEMARTHROSIS
     Dosage: 1000 IU, 1X/DAY
     Route: 042
     Dates: start: 20110806, end: 20110806
  9. NONACOG ALFA [Suspect]
     Dosage: 1000 IU, 1X/DAY
     Route: 042
     Dates: start: 20110815, end: 20110815
  10. NONACOG ALFA [Suspect]
     Dosage: 1000 IU, 1X/DAY
     Route: 042
     Dates: start: 20110817, end: 20110817

REACTIONS (1)
  - FACTOR IX INHIBITION [None]
